FAERS Safety Report 4867828-5 (Version None)
Quarter: 2005Q4

REPORT INFORMATION
  Report Type: 
  Country: None (occurrence: None)
  Receive Date: 20051228
  Receipt Date: 20051220
  Transmission Date: 20060501
  Serious: Yes (Hospitalization)
  Sender: FDA-Public Use
  Company Number: GB-MERCK-0512USA03368

PATIENT
  Age: 61 Year
  Sex: Male

DRUGS (6)
  1. PRINIVIL [Suspect]
     Route: 048
     Dates: start: 20050802, end: 20050820
  2. CLOPIDOGREL BISULFATE [Suspect]
     Route: 048
     Dates: start: 20050802, end: 20050820
  3. ATENOLOL [Suspect]
     Route: 048
     Dates: start: 20050802, end: 20050827
  4. ASPIRIN [Concomitant]
     Route: 048
     Dates: start: 20050802
  5. ZOCOR [Concomitant]
     Route: 048
     Dates: start: 20050802, end: 20050827
  6. OMEPRAZOLE [Concomitant]
     Route: 048
     Dates: start: 20050802, end: 20050827

REACTIONS (2)
  - MOUTH ULCERATION [None]
  - VASCULITIC RASH [None]
